FAERS Safety Report 6270942-3 (Version None)
Quarter: 2009Q3

REPORT INFORMATION
  Report Type: 
  Country: None (occurrence: None)
  Receive Date: 20090716
  Receipt Date: 20090703
  Transmission Date: 20100115
  Serious: Yes (Other)
  Sender: FDA-Public Use
  Company Number: GR-ELI_LILLY_AND_COMPANY-GR200906003637

PATIENT
  Age: 83 Year
  Sex: Male

DRUGS (7)
  1. CYMBALTA [Suspect]
     Indication: DIABETIC NEUROPATHY
     Dosage: 60 MG, SINGLE DOSE
     Route: 048
     Dates: start: 20090615, end: 20090615
  2. NOZINAN /00038602/ [Concomitant]
     Indication: ANXIETY
     Dosage: 25 MG, UNKNOWN
     Route: 048
     Dates: start: 20090615
  3. PROMAZINE HYDROCHLORIDE [Concomitant]
     Indication: ANXIETY
     Dosage: 25 MG, 2/D
     Route: 048
     Dates: start: 20090615
  4. MADOPAR [Concomitant]
     Indication: PARKINSON'S DISEASE
     Dosage: 200+50MG, UNKNOWN
     Route: 048
  5. MIRAPEX [Concomitant]
     Indication: PARKINSON'S DISEASE
     Dosage: 0.18 MG, UNKNOWN
     Route: 048
  6. DRUG USED IN DIABETES [Concomitant]
     Indication: DIABETES MELLITUS
     Dosage: UNK, UNKNOWN
     Route: 065
  7. ANTIHYPERTENSIVES [Concomitant]
     Indication: HYPERTENSION
     Dosage: UNK, UNKNOWN
     Route: 065

REACTIONS (2)
  - EPILEPSY [None]
  - MYOCLONUS [None]
